FAERS Safety Report 8101433-2 (Version None)
Quarter: 2012Q1

REPORT INFORMATION
  Report Type: 
  Country: None (occurrence: None)
  Receive Date: 20120129
  Receipt Date: 20110907
  Transmission Date: 20120608
  Serious: No
  Sender: FDA-Public Use
  Company Number: US-ABBOTT-11P-163-0852519-00

PATIENT
  Age: 51 Year
  Sex: Female

DRUGS (6)
  1. FUROSEMIDE [Concomitant]
     Indication: PRODUCT USED FOR UNKNOWN INDICATION
     Route: 048
  2. HUMIRA [Suspect]
     Indication: PSORIASIS
     Route: 058
     Dates: start: 20080101, end: 20110401
  3. BISOPROLOL FUMARATE AND HYDROCHLOROTHIAZIDE [Concomitant]
     Dosage: EVERY OTHER DAY
  4. ZOLOFT [Concomitant]
     Indication: DEPRESSION
     Route: 048
  5. ZOLOFT [Concomitant]
     Indication: PAIN
  6. BISOPROLOL FUMARATE AND HYDROCHLOROTHIAZIDE [Concomitant]
     Indication: BLOOD PRESSURE

REACTIONS (8)
  - LUNG NEOPLASM [None]
  - BRONCHIOLITIS [None]
  - BIOPSY BRONCHUS [None]
  - PSORIASIS [None]
  - BRONCHITIS [None]
  - RESPIRATORY DISORDER [None]
  - PSORIATIC ARTHROPATHY [None]
  - JOINT SWELLING [None]
